FAERS Safety Report 6925822-4 (Version None)
Quarter: 2010Q3

REPORT INFORMATION
  Report Type: 
  Country: None (occurrence: None)
  Receive Date: 20100816
  Receipt Date: 20100803
  Transmission Date: 20110219
  Serious: Yes (Other)
  Sender: FDA-Public Use
  Company Number: CA-ELI_LILLY_AND_COMPANY-CA201008001146

PATIENT
  Sex: Female

DRUGS (1)
  1. HUMATROPE [Suspect]
     Dosage: 0.8 MG, UNKNOWN
     Dates: start: 20020101

REACTIONS (1)
  - OSTEOARTHRITIS [None]
